FAERS Safety Report 25714398 (Version 1)
Quarter: 2025Q3

REPORT INFORMATION
  Report Type: Spontaneous
  Country: US (occurrence: US)
  Receive Date: 20250822
  Receipt Date: 20250822
  Transmission Date: 20251021
  Serious: No
  Sender: SUNOVION
  Company Number: US-SMPA-2025SPA010553

PATIENT
  Age: 86 Year
  Sex: Male

DRUGS (1)
  1. GEMTESA [Suspect]
     Active Substance: VIBEGRON
     Indication: Bladder disorder
     Route: 048

REACTIONS (3)
  - Catheter site pain [Unknown]
  - Catheter site discharge [Unknown]
  - Device malfunction [Unknown]
